FAERS Safety Report 17845374 (Version 1)
Quarter: 2020Q2

REPORT INFORMATION
  Report Type: Spontaneous
  Country: ES (occurrence: ES)
  Receive Date: 20200601
  Receipt Date: 20200601
  Transmission Date: 20200714
  Serious: Yes (Death, Hospitalization)
  Sender: FDA-Public Use
  Company Number: ES-MYLANLABS-2020M1052808

PATIENT
  Age: 65 Year
  Sex: Male

DRUGS (4)
  1. METHYLENE BLUE. [Suspect]
     Active Substance: METHYLENE BLUE
     Indication: HYPOTENSION
     Dosage: RECEIVED AT HIGH-DOSE
     Route: 065
     Dates: start: 2018
  2. NOREPINEPHRINE. [Suspect]
     Active Substance: NOREPINEPHRINE
     Indication: HYPOTENSION
     Dosage: RECEIVED AT HIGH-DOSE
     Route: 065
     Dates: start: 2018
  3. ISOPRENALINE [Suspect]
     Active Substance: ISOPROTERENOL HYDROCHLORIDE
     Indication: HYPOTENSION
     Dosage: RECEIVED AT HIGH-DOSE
     Route: 065
     Dates: start: 2018
  4. EPINEPHRINE. [Suspect]
     Active Substance: EPINEPHRINE
     Indication: HYPOTENSION
     Dosage: RECEIVED AT HIGH-DOSE
     Route: 065
     Dates: start: 2018

REACTIONS (1)
  - Drug ineffective [Fatal]

NARRATIVE: CASE EVENT DATE: 2018
